FAERS Safety Report 13252642 (Version 1)
Quarter: 2017Q1

REPORT INFORMATION
  Report Type: Spontaneous
  Country: IT (occurrence: IT)
  Receive Date: 20170220
  Receipt Date: 20170220
  Transmission Date: 20170428
  Serious: Yes (Hospitalization)
  Sender: FDA-Public Use
  Company Number: IT-BAYER-2017-028779

PATIENT
  Age: 80 Year
  Sex: Female

DRUGS (3)
  1. NEXAVAR [Suspect]
     Active Substance: SORAFENIB
     Indication: HEPATOCELLULAR CARCINOMA
     Dosage: 200 MG, QD
     Route: 048
     Dates: start: 20161018, end: 20161029
  2. LUCEN [Concomitant]
     Active Substance: ESOMEPRAZOLE
     Dosage: UNK
  3. MEDROL [Concomitant]
     Active Substance: METHYLPREDNISOLONE
     Dosage: UNK

REACTIONS (3)
  - Pruritus [Unknown]
  - Rash papular [Unknown]
  - Pharyngeal erythema [Unknown]

NARRATIVE: CASE EVENT DATE: 20161030
